FAERS Safety Report 8195927-1 (Version None)
Quarter: 2012Q1

REPORT INFORMATION
  Report Type: 
  Country: None (occurrence: None)
  Receive Date: 20120308
  Receipt Date: 20120224
  Transmission Date: 20120608
  Serious: Yes (Other)
  Sender: FDA-Public Use
  Company Number: GB-MYLANLABS-2012S1004473

PATIENT
  Age: 52 Year
  Sex: Male

DRUGS (7)
  1. PHENYTOIN [Suspect]
     Route: 037
  2. METRONIDAZOLE [Concomitant]
     Route: 065
  3. PHENYTOIN [Suspect]
     Indication: PROPHYLAXIS
     Route: 042
  4. PIPERACILLIN [Concomitant]
     Route: 065
  5. PHENYTOIN [Suspect]
     Indication: MEDICATION ERROR
     Route: 042
  6. PHENYTOIN [Suspect]
     Route: 037
  7. GENTAMICIN [Concomitant]
     Route: 065

REACTIONS (4)
  - CONVULSION [None]
  - TACHYCARDIA [None]
  - INCORRECT ROUTE OF DRUG ADMINISTRATION [None]
  - HYPERTENSION [None]
